FAERS Safety Report 8941998 (Version 2)
Quarter: 2013Q3

REPORT INFORMATION
  Report Type: Spontaneous
  Country: US (occurrence: US)
  Receive Date: 20121203
  Receipt Date: 20130807
  Transmission Date: 20140515
  Serious: No
  Sender: FDA-Public Use
  Company Number: US-PFIZER INC-2012301891

PATIENT
  Sex: Male

DRUGS (2)
  1. LYRICA [Suspect]
     Dosage: UNK
  2. LYRICA [Suspect]
     Dosage: 200 MG

REACTIONS (3)
  - Nasopharyngitis [Unknown]
  - Feeling abnormal [Unknown]
  - Malaise [Unknown]
